FAERS Safety Report 6072189-2 (Version None)
Quarter: 2009Q1

REPORT INFORMATION
  Report Type: 
  Country: None (occurrence: None)
  Receive Date: 20090206
  Receipt Date: 20090206
  Transmission Date: 20090719
  Serious: No
  Sender: FDA-Public Use
  Company Number: None

PATIENT
  Sex: Female
  Weight: 45 kg

DRUGS (14)
  1. AMLODIPINE [Suspect]
     Dosage: 5MG TABLET 10 MG QD ORAL
     Route: 048
     Dates: start: 20090102, end: 20090205
  2. ADVAIR DISKUS 100/50 [Concomitant]
  3. ALBUTEROL [Concomitant]
  4. CALCIUM + D [Concomitant]
  5. FOSAMAX (ALDENDRONATE) [Concomitant]
  6. FUROSEMIDE [Concomitant]
  7. LACTULOSE [Concomitant]
  8. LEVOTHYROXINE SODIUM [Concomitant]
  9. NADOLOL [Concomitant]
  10. OMEPRAZOLE [Concomitant]
  11. PLAVIX [Concomitant]
  12. SPIRIVA [Concomitant]
  13. SPIRONOLACTONE [Concomitant]
  14. VITAMIN D2 (ERGOCALCIFEROL) [Concomitant]

REACTIONS (1)
  - OEDEMA [None]
